FAERS Safety Report 8846812 (Version 1)
Quarter: 2012Q4

REPORT INFORMATION
  Report Type: 
  Country: US (occurrence: US)
  Receive Date: 20121018
  Receipt Date: 20121018
  Transmission Date: 20130627
  Serious: No
  Sender: FDA-Public Use
  Company Number: US-PFIZER INC-2012258229

PATIENT
  Age: 46 Year

DRUGS (3)
  1. GEODON [Suspect]
     Dosage: 40 mg, every night
  2. PAXIL [Concomitant]
     Dosage: UNK
  3. KLONOPIN [Concomitant]
     Dosage: UNK

REACTIONS (3)
  - Circumstance or information capable of leading to medication error [Unknown]
  - Malaise [Unknown]
  - Drug dose omission [Unknown]
